FAERS Safety Report 16968478 (Version 1)
Quarter: 2019Q4

REPORT INFORMATION
  Report Type: Other
  Country: DE (occurrence: DE)
  Receive Date: 20191029
  Receipt Date: 20191029
  Transmission Date: 20200122
  Serious: Yes (Other)
  Sender: FDA-Public Use
  Company Number: DE-ORCHID HEALTHCARE-2076106

PATIENT
  Age: 6 Year
  Sex: Female

DRUGS (2)
  1. CLOTRIMAZOL-CONTAINING CREAM [Concomitant]
     Route: 061
  2. TERBINAFINE HYDROCHLORIDE. [Suspect]
     Active Substance: TERBINAFINE HYDROCHLORIDE
     Indication: BODY TINEA
     Route: 048

REACTIONS (3)
  - Panic attack [Unknown]
  - Pyrexia [Unknown]
  - Migraine [Unknown]
